FAERS Safety Report 9646125 (Version 5)
Quarter: 2013Q4

REPORT INFORMATION
  Report Type: Spontaneous
  Country: US (occurrence: US)
  Receive Date: 20131025
  Receipt Date: 20131120
  Transmission Date: 20140711
  Serious: Yes (Other)
  Sender: FDA-Public Use
  Company Number: US-PFIZER INC-K200900024

PATIENT
  Age: 61 Year
  Sex: Male
  Weight: 95.24 kg

DRUGS (5)
  1. ALTACE [Suspect]
     Indication: HYPERTENSION
     Dosage: 10 MG, 1X/DAY
     Route: 048
     Dates: start: 2006
  2. ALTACE [Suspect]
     Indication: HYPERTENSION
     Dosage: 5 MG, DAILY
     Route: 048
     Dates: start: 200601
  3. RAMIPRIL [Suspect]
     Indication: HYPERTENSION
     Dosage: 10 MG, 1X/DAY
     Route: 048
     Dates: start: 2006
  4. RAMIPRIL [Suspect]
     Indication: HYPERTENSION
  5. ASPIRIN [Suspect]
     Indication: HYPERTENSION
     Dosage: UNK

REACTIONS (11)
  - Urinary retention [Recovered/Resolved]
  - Asthenia [Recovered/Resolved]
  - Feeling abnormal [Recovered/Resolved]
  - Fluid retention [Recovered/Resolved]
  - Drug ineffective [Unknown]
  - Drug ineffective [Unknown]
  - Expired drug administered [Recovered/Resolved]
  - Drug administration error [Unknown]
  - Nervousness [Unknown]
  - Pre-existing condition improved [Unknown]
  - Therapeutic response unexpected [Unknown]
